FAERS Safety Report 13504692 (Version 2)
Quarter: 2017Q3

REPORT INFORMATION
  Report Type: Spontaneous
  Country: US (occurrence: US)
  Receive Date: 20170502
  Receipt Date: 20170724
  Transmission Date: 20171127
  Serious: No
  Sender: FDA-Public Use
  Company Number: US-IMPAX LABORATORIES, INC-2017-IPXL-01080

PATIENT
  Sex: Male
  Weight: 96 kg

DRUGS (8)
  1. RYTARY [Suspect]
     Active Substance: CARBIDOPA\LEVODOPA
     Indication: PARKINSON^S DISEASE
     Dosage: THREE CAPSULE, THREE TIMES DAILY
     Route: 048
  2. SINEMET [Concomitant]
     Active Substance: CARBIDOPA\LEVODOPA
     Dosage: 1 TAB AT 6AM, 1.5 TAB AT 9AM; 0.5 TAB AT 3 PM AND 6PM, 4 /DAY
     Route: 065
  3. ALEVE [Concomitant]
     Active Substance: NAPROXEN SODIUM
     Indication: ARTHRITIS
     Dosage: UNK
     Route: 065
  4. RYTARY [Suspect]
     Active Substance: CARBIDOPA\LEVODOPA
     Dosage: 36.25/145MG, ONE CAPSULE, FOUR TIMES DAILY
     Route: 048
     Dates: start: 2017
  5. AZILECT [Concomitant]
     Active Substance: RASAGILINE MESYLATE
     Indication: PARKINSON^S DISEASE
     Dosage: 1 DF, MORNING AT 6AM
     Route: 065
  6. VITAMINS [Concomitant]
     Active Substance: VITAMINS
     Indication: PRODUCT USED FOR UNKNOWN INDICATION
  7. RYTARY [Suspect]
     Active Substance: CARBIDOPA\LEVODOPA
     Dosage: 36.25/145MG, ONE CAPSULE, THREE TIMES DAILY (6AM, 3PM, AND 6PM)
     Route: 048
     Dates: start: 201701
  8. SINEMET [Concomitant]
     Active Substance: CARBIDOPA\LEVODOPA
     Indication: PARKINSON^S DISEASE
     Dosage: 9 TABLETS, UNK
     Route: 065

REACTIONS (3)
  - Drug effect delayed [Unknown]
  - Vomiting [Unknown]
  - Therapeutic response shortened [Unknown]
